FAERS Safety Report 17633240 (Version 1)
Quarter: 2020Q2

REPORT INFORMATION
  Report Type: Spontaneous
  Country: US (occurrence: US)
  Receive Date: 20200406
  Receipt Date: 20200406
  Transmission Date: 20200713
  Serious: Yes (Hospitalization)
  Sender: FDA-Public Use
  Company Number: US-MYLANLABS-2020M1034958

PATIENT
  Age: 73 Year
  Sex: Male

DRUGS (1)
  1. HEPARIN [Suspect]
     Active Substance: HEPARIN SODIUM
     Indication: PRODUCT USED FOR UNKNOWN INDICATION
     Route: 065

REACTIONS (5)
  - Decubitus ulcer [Recovering/Resolving]
  - Pulmonary embolism [Unknown]
  - Heparin-induced thrombocytopenia [Unknown]
  - Condition aggravated [Recovering/Resolving]
  - Haemodynamic instability [Unknown]
